FAERS Safety Report 24686475 (Version 4)
Quarter: 2025Q1

REPORT INFORMATION
  Report Type: Spontaneous
  Country: US (occurrence: US)
  Receive Date: 20241202
  Receipt Date: 20250102
  Transmission Date: 20250409
  Serious: No
  Sender: PFIZER
  Company Number: US-PFIZER INC-2020516191

PATIENT
  Age: 73 Year
  Sex: Female
  Weight: 56.236 kg

DRUGS (4)
  1. PREMARIN [Suspect]
     Active Substance: ESTROGENS, CONJUGATED
     Indication: Mitral valve disease
     Dosage: (0.625 MG/GRAM CREAM) 0.5 GM AS DIRECTED TWICE WEEKLY
     Route: 067
  2. PREMARIN [Suspect]
     Active Substance: ESTROGENS, CONJUGATED
     Indication: Hormone replacement therapy
  3. PREMARIN [Suspect]
     Active Substance: ESTROGENS, CONJUGATED
     Indication: Mitral valve disease
     Dosage: 0.625 MG, DAILY [TAKE ONE OF EACH DAILY BY MOUTH]
     Route: 048
     Dates: start: 2006
  4. PREMARIN [Suspect]
     Active Substance: ESTROGENS, CONJUGATED
     Indication: Hormone replacement therapy
     Dosage: 0.9 MG, DAILY [TAKE ONE OF EACH DAILY BY MOUTH]
     Route: 048
     Dates: start: 2006

REACTIONS (1)
  - Anxiety [Unknown]
